FAERS Safety Report 7391049-8 (Version None)
Quarter: 2011Q1

REPORT INFORMATION
  Report Type: 
  Country: None (occurrence: None)
  Receive Date: 20110324
  Receipt Date: 20110310
  Transmission Date: 20110831
  Serious: Yes (Other)
  Sender: FDA-Public Use
  Company Number: 2011SP000631

PATIENT
  Age: 33 Year
  Sex: Female

DRUGS (31)
  1. DIFLUCAN [Concomitant]
  2. ZOFRAN [Concomitant]
  3. VITAMIN D [Concomitant]
  4. MULTI-VITAMINS [Concomitant]
  5. DEPAKOTE ER [Concomitant]
  6. FLONASE [Concomitant]
  7. REQUIP [Concomitant]
  8. GLUCOSAMINE/CHONDROITIN /01625901/ [Concomitant]
  9. CLONAZEPAM [Concomitant]
  10. CALCIUM [Concomitant]
  11. DEMEROL [Concomitant]
  12. LOVAZA [Concomitant]
  13. FENOFIBRATE [Concomitant]
  14. FROVA [Concomitant]
  15. GEODON [Concomitant]
  16. LOVENOX [Concomitant]
  17. LEVOTHYROXINE [Concomitant]
  18. PRILOSEC [Concomitant]
  19. MUCINEX [Concomitant]
  20. BUDESONIDE [Suspect]
     Indication: WHEEZING
     Dosage: 0.5 MG; 1X; INHALATION
     Route: 055
     Dates: start: 20110224, end: 20110224
  21. BUDESONIDE [Suspect]
     Indication: DYSPNOEA
     Dosage: 0.5 MG; 1X; INHALATION
     Route: 055
     Dates: start: 20110224, end: 20110224
  22. ADDERALL 10 [Concomitant]
  23. ZYRTEC [Concomitant]
  24. ANTIBIOTICS [Concomitant]
  25. XOPENEX [Suspect]
     Indication: WHEEZING
     Dosage: 1.25 MG/3ML; PRN; INHALATION, 1.25 MG/3ML; 1X; INHALATION
     Route: 055
     Dates: start: 20110224, end: 20110224
  26. XOPENEX [Suspect]
     Indication: DYSPNOEA
     Dosage: 1.25 MG/3ML; PRN; INHALATION, 1.25 MG/3ML; 1X; INHALATION
     Route: 055
     Dates: start: 20110224, end: 20110224
  27. XOPENEX [Suspect]
     Indication: WHEEZING
     Dosage: 1.25 MG/3ML; PRN; INHALATION, 1.25 MG/3ML; 1X; INHALATION
     Route: 055
     Dates: end: 20100101
  28. XOPENEX [Suspect]
     Indication: DYSPNOEA
     Dosage: 1.25 MG/3ML; PRN; INHALATION, 1.25 MG/3ML; 1X; INHALATION
     Route: 055
     Dates: end: 20100101
  29. LISINOPRIL [Concomitant]
  30. TOPAMAX [Concomitant]
  31. VITAMIN B12 /00056201/ [Concomitant]

REACTIONS (7)
  - EXPIRED DRUG ADMINISTERED [None]
  - ERYTHEMA [None]
  - PRURITUS [None]
  - INCORRECT STORAGE OF DRUG [None]
  - SWELLING FACE [None]
  - THROAT TIGHTNESS [None]
  - URTICARIA [None]
